FAERS Safety Report 20812775 (Version 2)
Quarter: 2022Q2

REPORT INFORMATION
  Report Type: Spontaneous
  Country: US (occurrence: US)
  Receive Date: 20220511
  Receipt Date: 20220617
  Transmission Date: 20220721
  Serious: No
  Sender: FDA-Public Use
  Company Number: US-PFIZER INC-202200572973

PATIENT
  Age: 44 Year
  Sex: Male
  Weight: 90.718 kg

DRUGS (4)
  1. GENOTROPIN [Suspect]
     Active Substance: SOMATROPIN
     Dosage: 0.5 MG (INTERVAL IN INCREASING THE DOSE)
  2. GENOTROPIN [Suspect]
     Active Substance: SOMATROPIN
     Dosage: 0.5MG INJECTED NIGHTLY
     Dates: start: 2009
  3. METHADONE [Concomitant]
     Active Substance: METHADONE HYDROCHLORIDE
     Indication: Pain
     Dosage: 20 MG, DAILY
  4. OXYCODONE [Concomitant]
     Active Substance: OXYCODONE
     Indication: Pain
     Dosage: UNK, AS NEEDED (PILL 3-4 TIMES A DAY AS NEEDED)

REACTIONS (1)
  - Blood growth hormone decreased [Unknown]

NARRATIVE: CASE EVENT DATE: 20220401
